FAERS Safety Report 4381719-8 (Version None)
Quarter: 2004Q2

REPORT INFORMATION
  Report Type: 
  Country: None (occurrence: None)
  Receive Date: 20040615
  Receipt Date: 20040607
  Transmission Date: 20050107
  Serious: Yes (Other)
  Sender: FDA-Public Use
  Company Number: K200400849

PATIENT
  Age: 20 Year
  Sex: Male

DRUGS (1)
  1. ALTACE [Suspect]

REACTIONS (4)
  - CONDITION AGGRAVATED [None]
  - DIZZINESS [None]
  - MIGRAINE [None]
  - PRURITUS [None]
